FAERS Safety Report 15368005 (Version 1)
Quarter: 2018Q3

REPORT INFORMATION
  Report Type: Spontaneous
  Country: US (occurrence: US)
  Receive Date: 20180910
  Receipt Date: 20180910
  Transmission Date: 20181010
  Serious: No
  Sender: FDA-Public Use
  Company Number: US-SUNOVION-2018SUN003469

PATIENT
  Sex: Female

DRUGS (1)
  1. LATUDA [Suspect]
     Active Substance: LURASIDONE HYDROCHLORIDE
     Dosage: 20 MG, QD AFTER DINNER IN THE AFTERNOON
     Route: 048

REACTIONS (4)
  - Somnolence [Unknown]
  - Malaise [Unknown]
  - Feeling abnormal [Unknown]
  - Nervousness [Unknown]
